FAERS Safety Report 5720681-X (Version None)
Quarter: 2008Q2

REPORT INFORMATION
  Report Type: 
  Country: None (occurrence: None)
  Receive Date: 20080429
  Receipt Date: 20080422
  Transmission Date: 20081010
  Serious: Yes (Hospitalization, Other)
  Sender: FDA-Public Use
  Company Number: HQWYE021714APR05

PATIENT
  Sex: Female

DRUGS (4)
  1. PREMPRO [Suspect]
     Indication: HORMONE REPLACEMENT THERAPY
     Dosage: UNKNOWN
     Route: 048
     Dates: start: 19950101, end: 20010101
  2. PROGESTERONE [Suspect]
     Dosage: UNKNOWN
     Route: 048
     Dates: start: 19930101, end: 19950101
  3. PREMARIN [Suspect]
     Dosage: UNKNOWN
     Route: 048
     Dates: start: 19930101, end: 19950101
  4. PROVERA [Suspect]
     Dosage: UNKNOWN
     Route: 048
     Dates: start: 19930101, end: 19950101

REACTIONS (1)
  - BREAST CANCER METASTATIC [None]
